FAERS Safety Report 24971038 (Version 1)
Quarter: 2025Q1

REPORT INFORMATION
  Report Type: Spontaneous
  Country: IN (occurrence: IN)
  Receive Date: 20250214
  Receipt Date: 20250214
  Transmission Date: 20250408
  Serious: Yes (Other)
  Sender: MEITHEAL PHARMACEUTICALS
  Company Number: IN-MEITHEAL-2025MPLIT00044

PATIENT
  Age: 72 Year
  Sex: Female

DRUGS (4)
  1. CARBOPLATIN [Suspect]
     Active Substance: CARBOPLATIN
     Indication: Uterine cancer
     Dosage: FOR 1 HOUR AT 3 WEEKS INTERVAL
     Route: 042
  2. CARBOPLATIN [Suspect]
     Active Substance: CARBOPLATIN
     Indication: Uterine cancer
  3. DOCETAXEL [Suspect]
     Active Substance: DOCETAXEL
     Indication: Uterine cancer
     Route: 042
  4. DOCETAXEL [Suspect]
     Active Substance: DOCETAXEL
     Indication: Uterine cancer

REACTIONS (2)
  - Retinitis pigmentosa [Not Recovered/Not Resolved]
  - Off label use [Unknown]
